FAERS Safety Report 8117378-8 (Version None)
Quarter: 2012Q1

REPORT INFORMATION
  Report Type: 
  Country: None (occurrence: None)
  Receive Date: 20120206
  Receipt Date: 20120127
  Transmission Date: 20120608
  Serious: Yes (Hospitalization)
  Sender: FDA-Public Use
  Company Number: BR-ASTRAZENECA-2012SE06449

PATIENT
  Age: 74 Year
  Sex: Male
  Weight: 99 kg

DRUGS (7)
  1. AMIODARONE HYDROCHLORIDE [Concomitant]
     Indication: THROMBOSIS
     Route: 048
  2. PAROXETINE HCL [Concomitant]
     Route: 048
  3. ASPIRIN [Concomitant]
     Route: 048
  4. ATACAND HCT [Suspect]
     Indication: HYPERTENSION
     Dosage: 16/12.5MG
     Route: 048
     Dates: start: 20110101
  5. NEXIUM [Suspect]
     Route: 048
  6. LIPITOR [Concomitant]
     Route: 048
  7. SOMALGIN [Concomitant]
     Route: 048

REACTIONS (1)
  - CORONARY ARTERY OCCLUSION [None]
